FAERS Safety Report 20535139 (Version 2)
Quarter: 2022Q1

REPORT INFORMATION
  Report Type: Other
  Country: CA (occurrence: None)
  Receive Date: 20220302
  Receipt Date: 20220304
  Transmission Date: 20220423
  Serious: Yes (Hospitalization)
  Sender: FDA-Public Use
  Company Number: CA-ROCHE-3031051

PATIENT
  Age: 48 Year
  Sex: Female

DRUGS (3)
  1. IMIPENEM [Suspect]
     Active Substance: IMIPENEM
     Indication: Achromobacter infection
     Route: 065
  2. MYCOPHENOLATE MOFETIL [Suspect]
     Active Substance: MYCOPHENOLATE MOFETIL
     Indication: Immunosuppressant drug therapy
     Route: 065
  3. TACROLIMUS [Suspect]
     Active Substance: TACROLIMUS
     Indication: Immunosuppressant drug therapy
     Route: 065

REACTIONS (5)
  - Aspergillus infection [Unknown]
  - Pulmonary sepsis [Unknown]
  - Rash maculo-papular [Unknown]
  - Respiratory distress [Unknown]
  - Type IV hypersensitivity reaction [Unknown]
